FAERS Safety Report 9536265 (Version 2)
Quarter: 2014Q2

REPORT INFORMATION
  Report Type: Report from Study
  Country: US (occurrence: US)
  Receive Date: 20130507
  Receipt Date: 20140605
  Transmission Date: 20141212
  Serious: Yes (Other)
  Sender: FDA-Public Use
  Company Number: PHEH2013US000759

PATIENT
  Age: 14 Year
  Sex: Female
  Weight: 53.97 kg

DRUGS (28)
  1. AFINITOR [Suspect]
     Indication: BRAIN NEOPLASM BENIGN
     Dosage: 7.5 MG, DAILY
     Route: 048
     Dates: start: 20110608
  2. AFINITOR [Suspect]
     Dosage: 7.5 MG, DAILY
     Route: 048
     Dates: start: 20121220, end: 20130530
  3. AFINITOR [Suspect]
     Dosage: 7.5 MG, QD
     Route: 048
     Dates: start: 20130708, end: 20130715
  4. AFINITOR [Suspect]
     Dosage: 7.5 MG, HALF DOSE
     Dates: start: 20130723
  5. AFINITOR [Suspect]
     Dosage: 7.5 MG, FULL DOSE
     Dates: start: 20130724
  6. AFINITOR [Suspect]
     Dosage: UNK
     Dates: start: 20130819, end: 20130831
  7. AFINITOR [Suspect]
     Dosage: 7.5 MG, DAY
     Route: 048
     Dates: start: 20130901, end: 20130923
  8. AFINITOR [Suspect]
     Dosage: UNK
     Dates: start: 20130924, end: 20131203
  9. AFINITOR [Suspect]
     Dosage: UNK
     Dates: start: 20140122
  10. AFINITOR [Suspect]
     Dosage: UNK
     Dates: start: 20140128, end: 20140128
  11. AFINITOR [Suspect]
     Dosage: UNK
     Dates: start: 20140214
  12. AFINITOR [Suspect]
     Dosage: UNK
     Dates: start: 20140306, end: 20140310
  13. AFINITOR [Suspect]
     Dosage: UNK
     Dates: start: 20140320, end: 20140419
  14. AFINITOR [Suspect]
     Dosage: 7.5 MG, DAILY
     Route: 048
     Dates: start: 20140419, end: 20140421
  15. AFINITOR [Suspect]
     Dosage: 7.5 MG, EVERY OTHER DAY
     Route: 048
     Dates: start: 20140425
  16. MIRALAX [Concomitant]
     Indication: CONSTIPATION
  17. LEXAPRO [Concomitant]
     Dosage: 40 MG, QD
     Route: 048
  18. VITAMIN D3 [Concomitant]
     Dosage: 1000 IU, DAILY
  19. FLINTSTONES MULTIPLE VITAMINS [Concomitant]
     Route: 048
  20. TUMS [Concomitant]
  21. LYSINE [Concomitant]
     Dosage: 500 MG,DAILY
     Route: 048
  22. ZINC [Concomitant]
     Dosage: 10 MG, DAILY
     Route: 048
  23. MIDAZOLAM [Concomitant]
     Dosage: 5 MG
  24. BUSPAR [Concomitant]
     Indication: STRESS
     Dosage: 5 MG
     Route: 048
  25. CLEOCIN [Concomitant]
     Indication: ACNE
     Dosage: 1 %
     Route: 061
  26. DIASTAT                            /01384601/ [Concomitant]
  27. ZYRTEC [Concomitant]
     Indication: SEASONAL ALLERGY
     Dosage: 10 MG
  28. MELATONIN [Concomitant]
     Indication: SLEEP DISORDER
     Dosage: 2.5 MG, QD
     Route: 048

REACTIONS (21)
  - Petit mal epilepsy [Recovered/Resolved]
  - Convulsion [Recovered/Resolved]
  - Sinus disorder [Recovered/Resolved]
  - Musculoskeletal pain [Recovering/Resolving]
  - Rhinorrhoea [Unknown]
  - Oropharyngeal pain [Recovered/Resolved]
  - Anxiety [Recovered/Resolved]
  - Cough [Recovered/Resolved]
  - Diarrhoea [Recovered/Resolved]
  - Herpes zoster [Recovering/Resolving]
  - Rash [Recovered/Resolved]
  - Otitis media [Recovered/Resolved]
  - Oral pain [Recovered/Resolved]
  - Bronchitis [Recovered/Resolved]
  - Stomatitis [Unknown]
  - Pyrexia [Unknown]
  - Decreased appetite [Unknown]
  - Hypersensitivity [Unknown]
  - Eye swelling [Unknown]
  - Blood pressure increased [Unknown]
  - Malaise [Unknown]
